FAERS Safety Report 18755070 (Version 1)
Quarter: 2021Q1

REPORT INFORMATION
  Report Type: Spontaneous
  Country: US (occurrence: US)
  Receive Date: 20210114
  Receipt Date: 20210114
  Transmission Date: 20210419
  Serious: Yes (Life-Threatening)
  Sender: FDA-Public Use
  Company Number: None

PATIENT
  Age: 72 Year
  Sex: Male
  Weight: 120 kg

DRUGS (1)
  1. VANCOMYCIN (VANCOMYCIN HCL 1GM/VIL INJ) [Suspect]
     Active Substance: VANCOMYCIN HYDROCHLORIDE
     Indication: CARDIAC OPERATION
     Route: 042
     Dates: start: 20201028, end: 20201028

REACTIONS (5)
  - Pulse absent [None]
  - Cardio-respiratory arrest [None]
  - Hypotension [None]
  - Unresponsive to stimuli [None]
  - Anaphylactic reaction [None]

NARRATIVE: CASE EVENT DATE: 20201028
